FAERS Safety Report 9051171 (Version 1)
Quarter: 2013Q1

REPORT INFORMATION
  Report Type: Spontaneous
  Country: US (occurrence: US)
  Receive Date: 20130206
  Receipt Date: 20130206
  Transmission Date: 20140127
  Serious: Yes (Other)
  Sender: FDA-Public Use
  Company Number: US-BAYER-2013-012127

PATIENT
  Age: 54 Year
  Sex: Female
  Weight: 63.49 kg

DRUGS (8)
  1. ALKA-SELTZER PLUS COLD + COUGH [Suspect]
     Indication: THROAT IRRITATION
     Dosage: 2 DF, UNK
     Route: 048
  2. LISINOPRIL [Concomitant]
  3. LOPRESSOR [Concomitant]
  4. LASIX [FUROSEMIDE] [Concomitant]
  5. KLONOPIN [Concomitant]
  6. CYMBALTA [Concomitant]
  7. TRAZODONE [Concomitant]
  8. SPIRIVA [Concomitant]

REACTIONS (13)
  - Swollen tongue [Not Recovered/Not Resolved]
  - Cardiac disorder [Not Recovered/Not Resolved]
  - Pruritus [Not Recovered/Not Resolved]
  - Erythema [Recovered/Resolved]
  - Palpitations [Not Recovered/Not Resolved]
  - Pruritus [Not Recovered/Not Resolved]
  - Nausea [Not Recovered/Not Resolved]
  - Vomiting [Not Recovered/Not Resolved]
  - Lip disorder [Not Recovered/Not Resolved]
  - Malaise [Not Recovered/Not Resolved]
  - Headache [Not Recovered/Not Resolved]
  - Pruritus [Not Recovered/Not Resolved]
  - Erythema [Recovered/Resolved]
